FAERS Safety Report 10613272 (Version 1)
Quarter: 2014Q4

REPORT INFORMATION
  Report Type: Spontaneous
  Country: US (occurrence: US)
  Receive Date: 20141128
  Receipt Date: 20141128
  Transmission Date: 20150529
  Serious: No
  Sender: FDA-Public Use
  Company Number: US-AMGEN-USASP2014091719

PATIENT
  Age: 68 Year
  Sex: Female

DRUGS (1)
  1. ENBREL [Suspect]
     Active Substance: ETANERCEPT
     Indication: RHEUMATOID ARTHRITIS
     Dosage: 50 MG, QWK
     Route: 065
     Dates: start: 2004

REACTIONS (11)
  - Back pain [Not Recovered/Not Resolved]
  - Injection site warmth [Unknown]
  - Productive cough [Not Recovered/Not Resolved]
  - Arthralgia [Unknown]
  - Injection site pain [Unknown]
  - Musculoskeletal pain [Not Recovered/Not Resolved]
  - Injection site pruritus [Unknown]
  - Pain [Unknown]
  - Respiratory tract congestion [Not Recovered/Not Resolved]
  - Injection site erythema [Unknown]
  - Muscular weakness [Unknown]

NARRATIVE: CASE EVENT DATE: 2012
